FAERS Safety Report 6055692-0 (Version None)
Quarter: 2009Q1

REPORT INFORMATION
  Report Type: 
  Country: None (occurrence: None)
  Receive Date: 20090128
  Receipt Date: 20090119
  Transmission Date: 20090719
  Serious: Yes (Hospitalization)
  Sender: FDA-Public Use
  Company Number: FR-WATSON-2009-00246

PATIENT
  Age: 85 Year
  Sex: Male

DRUGS (4)
  1. TRELSTAR LA (WATSON LABORATORIES) [Suspect]
     Indication: PROSTATE CANCER
     Dosage: 11.25 MGX1
     Route: 030
     Dates: start: 20081213
  2. TRELSTAR LA (WATSON LABORATORIES) [Suspect]
     Dosage: 11.25 MG, Q3MONTHS
     Route: 030
     Dates: start: 20050101
  3. TAREG [Suspect]
     Indication: DRUG USE FOR UNKNOWN INDICATION
     Dosage: UNK
     Route: 065
  4. OGAST [Suspect]
     Indication: DRUG USE FOR UNKNOWN INDICATION
     Dosage: UNK
     Route: 065

REACTIONS (1)
  - LICHENOID KERATOSIS [None]
